FAERS Safety Report 5358778-9 (Version None)
Quarter: 2007Q2

REPORT INFORMATION
  Report Type: 
  Country: None (occurrence: None)
  Receive Date: 20070615
  Receipt Date: 20070611
  Transmission Date: 20071010
  Serious: Yes (Life-Threatening, Hospitalization)
  Sender: FDA-Public Use
  Company Number: DE-AVENTIS-200711505DE

PATIENT
  Sex: Male

DRUGS (3)
  1. CLEXANE [Suspect]
     Dosage: DOSE: NOT REPORTED
     Dates: start: 20070101
  2. CLEXANE [Suspect]
     Dosage: DOSE: NOT REPORTED
     Dates: start: 20070101
  3. ALL OTHER THERAPEUTIC PRODUCTS [Suspect]
     Dosage: DOSE: NOT REPORTED

REACTIONS (1)
  - MYOCARDIAL INFARCTION [None]
